FAERS Safety Report 24898175 (Version 5)
Quarter: 2025Q3

REPORT INFORMATION
  Report Type: Report from Study
  Country: US (occurrence: US)
  Receive Date: 20250129
  Receipt Date: 20250916
  Transmission Date: 20251020
  Serious: Yes (Other)
  Sender: CSL BEHRING
  Company Number: US-BEH-2024173967

PATIENT
  Age: 77 Year
  Sex: Female
  Weight: 61.36 kg

DRUGS (24)
  1. HIZENTRA [Suspect]
     Active Substance: HUMAN IMMUNOGLOBULIN G
     Indication: Chronic inflammatory demyelinating polyradiculoneuropathy
     Route: 065
  2. HIZENTRA [Suspect]
     Active Substance: HUMAN IMMUNOGLOBULIN G
     Dosage: 200 MG, QW
     Route: 058
  3. HIZENTRA [Suspect]
     Active Substance: HUMAN IMMUNOGLOBULIN G
     Route: 065
  4. HIZENTRA [Suspect]
     Active Substance: HUMAN IMMUNOGLOBULIN G
     Dosage: 12 G, QW
     Route: 058
     Dates: start: 202212
  5. HIZENTRA [Suspect]
     Active Substance: HUMAN IMMUNOGLOBULIN G
     Route: 065
     Dates: start: 202301
  6. ACETAMINOPHEN [Concomitant]
     Active Substance: ACETAMINOPHEN
  7. AMLODIPINE [Concomitant]
     Active Substance: AMLODIPINE BESYLATE
     Dosage: 5 MG, QD
     Route: 048
     Dates: start: 20230909
  8. BROMFENAC [Concomitant]
     Active Substance: BROMFENAC
     Dates: start: 20230111
  9. CALCIUM CARBONATE\VITAMIN D [Concomitant]
     Active Substance: CALCIUM CARBONATE\VITAMIN D
     Dates: start: 20231025
  10. CLOBETASOL [Concomitant]
     Active Substance: CLOBETASOL
     Dosage: 0.05 % SCALP SOLUTION APPLY ON AFFECTED AREA
     Route: 061
     Dates: start: 20230928
  11. CLOBETASOL [Concomitant]
     Active Substance: CLOBETASOL
     Dosage: 0.05 % ON AFFECTED AREA
     Route: 061
     Dates: start: 20230925
  12. EPINEPHRINE [Concomitant]
     Active Substance: EPINEPHRINE
     Dates: start: 20221221
  13. FLUOCINOLONE ACETONIDE [Concomitant]
     Active Substance: FLUOCINOLONE ACETONIDE
     Dates: start: 20230706
  14. HYDROCHLOROTHIAZIDE [Concomitant]
     Active Substance: HYDROCHLOROTHIAZIDE
     Dosage: 12.5 MG, 1 TABLET QD, BY MOUTH IN MORNING
  15. HYDROCORTISONE BUTYRATE [Concomitant]
     Active Substance: HYDROCORTISONE BUTYRATE
     Route: 061
     Dates: start: 20231025
  16. METFORMIN HYDROCHLORIDE [Concomitant]
     Active Substance: METFORMIN HYDROCHLORIDE
     Dosage: 500 MG, QD
     Dates: start: 20230711
  17. MIRAPEX [Concomitant]
     Active Substance: PRAMIPEXOLE DIHYDROCHLORIDE
     Dosage: 2 DF, QD
     Route: 048
     Dates: start: 20231025
  18. MOXIFLOXACIN [Concomitant]
     Active Substance: MOXIFLOXACIN
     Dates: start: 20230109
  19. ORACEA [Concomitant]
     Active Substance: DOXYCYCLINE
     Dosage: 40 MG, QD
     Route: 048
     Dates: start: 20231025
  20. PREGABALIN [Concomitant]
     Active Substance: PREGABALIN
     Dates: start: 20231009
  21. PROAIR HFA [Concomitant]
     Active Substance: ALBUTEROL SULFATE
     Dosage: 90 MCG, EVERY 4 HR
     Route: 055
     Dates: start: 20241025
  22. VITAMIN B COMPLEX [Concomitant]
     Active Substance: CYANOCOBALAMIN\DEXPANTHENOL\NIACINAMIDE\PYRIDOXINE HYDROCHLORIDE\RIBOFLAVIN 5^-PHOSPHATE SODIUM\THIA
     Dates: start: 20231025
  23. VITAMIN D3 [Concomitant]
     Active Substance: CHOLECALCIFEROL
     Dosage: 10 MCG, QD
     Route: 048
     Dates: start: 20231025
  24. PROLIA [Concomitant]
     Active Substance: DENOSUMAB

REACTIONS (15)
  - Herpes zoster [Recovered/Resolved]
  - Deep vein thrombosis [Unknown]
  - Deep vein thrombosis [Unknown]
  - COVID-19 [Recovered/Resolved]
  - Hypersensitivity [Not Recovered/Not Resolved]
  - Infusion site haemorrhage [Recovered/Resolved]
  - Papule [Unknown]
  - Infusion site haemorrhage [Unknown]
  - Peripheral swelling [Unknown]
  - Illness [Unknown]
  - Peripheral swelling [Unknown]
  - Joint swelling [Unknown]
  - Poor venous access [Unknown]
  - Intentional dose omission [Unknown]
  - Product dose omission issue [Unknown]

NARRATIVE: CASE EVENT DATE: 20240101
